FAERS Safety Report 12798539 (Version 1)
Quarter: 2016Q3

REPORT INFORMATION
  Report Type: Report from Study
  Country: BR (occurrence: BR)
  Receive Date: 20160930
  Receipt Date: 20160930
  Transmission Date: 20161109
  Serious: Yes (Other)
  Sender: FDA-Public Use
  Company Number: BR-JNJFOC-20160929774

PATIENT
  Age: 24 Year
  Sex: Female
  Weight: 50 kg

DRUGS (2)
  1. SIMPONI [Suspect]
     Active Substance: GOLIMUMAB
     Indication: RHEUMATOID ARTHRITIS
     Route: 058
     Dates: start: 20130718
  2. METHOTREXATE. [Concomitant]
     Active Substance: METHOTREXATE
     Route: 065

REACTIONS (1)
  - Viral infection [Unknown]

NARRATIVE: CASE EVENT DATE: 201609
